FAERS Safety Report 7512532-8 (Version None)
Quarter: 2011Q2

REPORT INFORMATION
  Report Type: 
  Country: None (occurrence: None)
  Receive Date: 20110520
  Receipt Date: 20110518
  Transmission Date: 20111010
  Serious: Yes (Hospitalization)
  Sender: FDA-Public Use
  Company Number: 2011002336

PATIENT
  Age: 79 Year
  Sex: Male

DRUGS (1)
  1. TARCEVA [Suspect]
     Indication: LUNG NEOPLASM MALIGNANT
     Dosage: 125 MG, QD, ORAL
     Route: 048
     Dates: start: 20110301

REACTIONS (3)
  - DEHYDRATION [None]
  - RASH [None]
  - ANAEMIA [None]
